FAERS Safety Report 24312899 (Version 1)
Quarter: 2024Q3

REPORT INFORMATION
  Report Type: Spontaneous
  Country: DE (occurrence: DE)
  Receive Date: 20240912
  Receipt Date: 20240912
  Transmission Date: 20241016
  Serious: Yes (Hospitalization, Other)
  Sender: MYLAN
  Company Number: DE-UCBSA-2024042556

PATIENT
  Age: 9 Year
  Sex: Male

DRUGS (1)
  1. LEVETIRACETAM [Suspect]
     Active Substance: LEVETIRACETAM
     Indication: Epilepsy
     Dosage: UNK
     Route: 065

REACTIONS (9)
  - Cardiac arrest [Unknown]
  - Syncope [Unknown]
  - Myocardial depression [Unknown]
  - Fall [Unknown]
  - Cardiac resynchronisation therapy [Unknown]
  - Epilepsy [Unknown]
  - Seizure [Unknown]
  - Generalised tonic-clonic seizure [Unknown]
  - Off label use [Unknown]
